FAERS Safety Report 20061565 (Version 1)
Quarter: 2021Q4

REPORT INFORMATION
  Report Type: Spontaneous
  Country: CA (occurrence: CA)
  Receive Date: 20211112
  Receipt Date: 20211112
  Transmission Date: 20220303
  Serious: Yes (Hospitalization)
  Sender: FDA-Public Use
  Company Number: CA-AUROBINDO-AUR-APL-2013-07042

PATIENT
  Age: 68 Year
  Sex: Female

DRUGS (18)
  1. RAMIPRIL [Suspect]
     Active Substance: RAMIPRIL
     Indication: Hypotension
     Dosage: UNK UNK,UNK,
     Route: 065
     Dates: end: 20121128
  2. CITALOPRAM [Suspect]
     Active Substance: CITALOPRAM HYDROBROMIDE
     Indication: Depression
     Dosage: UNK UNK,UNK,
     Route: 065
  3. CELEBREX [Suspect]
     Active Substance: CELECOXIB
     Indication: Product used for unknown indication
     Dosage: UNK UNK,UNK,
     Route: 065
  4. LYRICA [Suspect]
     Active Substance: PREGABALIN
     Indication: Back pain
     Dosage: 150 MG,TWO TIMES A DAY,
     Route: 065
     Dates: start: 1990, end: 20090825
  5. LASIX [Suspect]
     Active Substance: FUROSEMIDE
     Indication: Fluid retention
     Dosage: 20 MG,ONCE A DAY,
     Route: 065
     Dates: start: 20090715, end: 20090825
  6. INSULIN NOS [Suspect]
     Active Substance: INSULIN NOS
     Indication: Product used for unknown indication
     Dosage: UNK UNK,UNK,
     Route: 065
  7. ACETAMINOPHEN [Concomitant]
     Active Substance: ACETAMINOPHEN
     Indication: Product used for unknown indication
     Dosage: UNK UNK,UNK,
     Route: 065
     Dates: start: 20121128
  8. ATORVASTATIN [Concomitant]
     Active Substance: ATORVASTATIN
     Indication: Product used for unknown indication
     Dosage: UNK UNK,UNK,
     Route: 065
  9. BISOPROLOL [Concomitant]
     Active Substance: BISOPROLOL
     Indication: Product used for unknown indication
     Dosage: UNK UNK,UNK,
     Route: 065
  10. FENOFIBRATE [Concomitant]
     Active Substance: FENOFIBRATE
     Indication: Product used for unknown indication
     Dosage: UNK UNK,UNK,
     Route: 065
  11. LANTUS [Concomitant]
     Active Substance: INSULIN GLARGINE
     Indication: Product used for unknown indication
     Dosage: UNK UNK,UNK,
     Route: 065
     Dates: start: 20130121
  12. METFORMIN [Concomitant]
     Active Substance: METFORMIN HYDROCHLORIDE
     Indication: Product used for unknown indication
     Dosage: UNK UNK,UNK,
     Route: 065
  13. METOPROLOL [Concomitant]
     Active Substance: METOPROLOL
     Indication: Product used for unknown indication
     Dosage: UNK UNK,UNK,
     Route: 065
  14. OXYCONTIN [Concomitant]
     Active Substance: OXYCODONE HYDROCHLORIDE
     Indication: Product used for unknown indication
     Dosage: UNK UNK,UNK,
     Route: 065
     Dates: start: 20121128
  15. PANTOPRAZOLE [Concomitant]
     Active Substance: PANTOPRAZOLE
     Indication: Product used for unknown indication
     Dosage: UNK UNK,UNK,
     Route: 065
  16. PERINDOPRIL [Concomitant]
     Active Substance: PERINDOPRIL
     Indication: Product used for unknown indication
     Dosage: UNK UNK,UNK,
     Route: 065
     Dates: start: 20121128
  17. RABEPRAZOLE [Concomitant]
     Active Substance: RABEPRAZOLE
     Indication: Product used for unknown indication
     Dosage: UNK UNK,UNK,
     Route: 065
  18. ALBUTEROL [Concomitant]
     Active Substance: ALBUTEROL
     Indication: Product used for unknown indication
     Dosage: UNK UNK,UNK,
     Route: 065

REACTIONS (14)
  - Renal failure [Recovering/Resolving]
  - Hypotension [Recovering/Resolving]
  - Diabetes mellitus inadequate control [Recovering/Resolving]
  - Encephalopathy [Not Recovered/Not Resolved]
  - Myoclonus [Not Recovered/Not Resolved]
  - Cognitive disorder [Unknown]
  - Depression [Not Recovered/Not Resolved]
  - Dysarthria [Not Recovered/Not Resolved]
  - Nervous system disorder [Not Recovered/Not Resolved]
  - Dyskinesia [Not Recovered/Not Resolved]
  - Tremor [Not Recovered/Not Resolved]
  - Muscular weakness [Not Recovered/Not Resolved]
  - Condition aggravated [Not Recovered/Not Resolved]
  - Drug ineffective [Not Recovered/Not Resolved]
